FAERS Safety Report 4394752-7 (Version None)
Quarter: 2004Q3

REPORT INFORMATION
  Report Type: 
  Country: None (occurrence: None)
  Receive Date: 20040712
  Receipt Date: 20040628
  Transmission Date: 20050211
  Serious: Yes (Hospitalization)
  Sender: FDA-Public Use
  Company Number: PHRM2004FR02232

PATIENT
  Age: 63 Year
  Sex: Male
  Weight: 69 kg

DRUGS (9)
  1. VOLTAREN [Suspect]
     Indication: BACK PAIN
     Dosage: 75 G, QD
     Route: 048
     Dates: start: 20040405, end: 20040427
  2. PARACETAMOL W/TRAMADOL [Suspect]
     Indication: BACK PAIN
     Dosage: 1 DF, QID
     Route: 048
     Dates: start: 20040330, end: 20040427
  3. AVLOCARDYL [Concomitant]
     Indication: HYPERTENSION
  4. CAPTOPRIL AND HYDROCHLOROTHIAZIDE [Concomitant]
     Indication: HYPERTENSION
     Route: 048
  5. LORAZEPAM [Concomitant]
     Indication: DEPRESSION
     Route: 048
  6. EFFEXOR [Concomitant]
     Indication: DEPRESSION
     Route: 048
  7. INIPOMP [Concomitant]
     Indication: GASTRITIS
  8. NOCTRAN [Concomitant]
     Route: 048
  9. CLARITIN [Concomitant]
     Route: 048

REACTIONS (10)
  - CONFUSIONAL STATE [None]
  - DERMATITIS BULLOUS [None]
  - ENTEROBACTER SEPSIS [None]
  - EXANTHEM [None]
  - NIKOLSKY'S SIGN [None]
  - PURPURA [None]
  - RESPIRATORY ALKALOSIS [None]
  - SKIN LESION [None]
  - TOXIC EPIDERMAL NECROLYSIS [None]
  - URTICARIA PAPULAR [None]
